FAERS Safety Report 21439791 (Version 1)
Quarter: 2022Q4

REPORT INFORMATION
  Report Type: Spontaneous
  Country: US (occurrence: US)
  Receive Date: 20221011
  Receipt Date: 20221011
  Transmission Date: 20230112
  Serious: Yes (Other)
  Sender: FDA-Public Use
  Company Number: US-HALEON-USCH2022036311

PATIENT
  Sex: Female

DRUGS (2)
  1. SENSODYNE NOURISH HEALTHY WHITE [Suspect]
     Active Substance: POTASSIUM NITRATE\SODIUM FLUORIDE
     Indication: Dental disorder prophylaxis
     Dosage: UNK UNK, BID
     Dates: start: 20220921, end: 20220921
  2. SENSODYNE NOURISH HEALTHY WHITE [Suspect]
     Active Substance: POTASSIUM NITRATE\SODIUM FLUORIDE
     Indication: Hyperaesthesia teeth

REACTIONS (5)
  - Poisoning [Unknown]
  - Pain [Unknown]
  - Gastric disorder [Unknown]
  - Off label use [Unknown]
  - Accidental exposure to product [Unknown]

NARRATIVE: CASE EVENT DATE: 20220901
